FAERS Safety Report 7289328-8 (Version None)
Quarter: 2011Q1

REPORT INFORMATION
  Report Type: 
  Country: None (occurrence: None)
  Receive Date: 20110211
  Receipt Date: 20110203
  Transmission Date: 20110831
  Serious: Yes (Other)
  Sender: FDA-Public Use
  Company Number: US-JNJCH-2011001253

PATIENT
  Sex: Female

DRUGS (4)
  1. NEOSPORIN LIP HEALTH DAILY HYDRATION THERAPY [Suspect]
     Indication: LIP DRY
     Dosage: TEXT:^DOT^ ONCE DAILY
     Route: 061
     Dates: start: 20110112, end: 20110112
  2. ASCORBIC ACID [Concomitant]
     Indication: PRODUCT USED FOR UNKNOWN INDICATION
     Dosage: TEXT:ONCE DAILY
     Route: 065
  3. VITAMIN A [Concomitant]
     Indication: PRODUCT USED FOR UNKNOWN INDICATION
     Dosage: TEXT:ONCE DAILY
     Route: 065
  4. VITAMIN D [Concomitant]
     Indication: PRODUCT USED FOR UNKNOWN INDICATION
     Dosage: TEXT:ONCE DAILY
     Route: 065

REACTIONS (1)
  - HYPERSENSITIVITY [None]
